FAERS Safety Report 8457706 (Version 3)
Quarter: 2012Q4

REPORT INFORMATION
  Report Type: 
  Country: AR (occurrence: AR)
  Receive Date: 20120314
  Receipt Date: 20121220
  Transmission Date: 20130627
  Serious: Yes (Hospitalization, Other)
  Sender: FDA-Public Use
  Company Number: AR-AMGEN-ARGSP2012015013

PATIENT
  Age: 54 Year
  Sex: Male

DRUGS (1)
  1. ENBREL [Suspect]
     Indication: RHEUMATOID ARTHRITIS
     Dosage: 50 mg, weekly
     Route: 058
     Dates: start: 20110204

REACTIONS (4)
  - Ear neoplasm [Not Recovered/Not Resolved]
  - Cyst [Not Recovered/Not Resolved]
  - Ear disorder [Not Recovered/Not Resolved]
  - Hypoacusis [Not Recovered/Not Resolved]
